FAERS Safety Report 10042543 (Version 1)
Quarter: 2014Q1

REPORT INFORMATION
  Report Type: Spontaneous
  Country: US (occurrence: None)
  Receive Date: 20140325
  Receipt Date: 20140325
  Transmission Date: 20141002
  Serious: Yes (Other)
  Sender: FDA-Public Use
  Company Number: 2013212025

PATIENT
  Age: 34 Year
  Sex: Male
  Weight: 122.47 kg

DRUGS (4)
  1. TESTOPEL [Suspect]
     Indication: HYPOGONADISM
     Dosage: 10 PELLETS, SUBCUTANEOUS
     Route: 058
     Dates: start: 2010
  2. ETODOLAC [Concomitant]
  3. LEVSIN [Concomitant]
  4. MULTIVITAMIN [Concomitant]

REACTIONS (6)
  - Irritability [None]
  - Mood swings [None]
  - Anger [None]
  - Mental disorder [None]
  - Anxiety [None]
  - Panic attack [None]
